FAERS Safety Report 9135982 (Version 1)
Quarter: 2013Q1

REPORT INFORMATION
  Report Type: Spontaneous
  Country: US (occurrence: US)
  Receive Date: 20130304
  Receipt Date: 20130304
  Transmission Date: 20140127
  Serious: No
  Sender: FDA-Public Use
  Company Number: US-ABBOTT-12P-163-0978731-00

PATIENT
  Age: 59 None
  Sex: Female

DRUGS (1)
  1. ANDROGEL [Suspect]
     Indication: PRODUCT USED FOR UNKNOWN INDICATION
     Route: 065

REACTIONS (4)
  - Paraesthesia oral [Unknown]
  - Tongue disorder [Recovered/Resolved]
  - Wrong technique in drug usage process [Unknown]
  - Tongue paralysis [Recovered/Resolved]
